FAERS Safety Report 8983830 (Version 1)
Quarter: 2012Q4

REPORT INFORMATION
  Report Type: Report from Study
  Country: CA (occurrence: CA)
  Receive Date: 20121224
  Receipt Date: 20121224
  Transmission Date: 20130627
  Serious: Yes (Death, Hospitalization)
  Sender: FDA-Public Use
  Company Number: CA-GILEAD-2012-0066901

PATIENT
  Age: 46 Year
  Sex: Male

DRUGS (2)
  1. TENOFOVIR DISOPROXIL FUMARATE [Suspect]
     Indication: HEPATITIS B
     Dosage: 300 DF, UNK
     Route: 048
     Dates: start: 20111221
  2. MORPHINE [Concomitant]

REACTIONS (1)
  - Head and neck cancer [Fatal]
